FAERS Safety Report 6459893-9 (Version None)
Quarter: 2009Q4

REPORT INFORMATION
  Report Type: 
  Country: None (occurrence: None)
  Receive Date: 20091129
  Receipt Date: 20091116
  Transmission Date: 20100525
  Serious: Yes (Hospitalization)
  Sender: FDA-Public Use
  Company Number: PHHY2009AU32017

PATIENT
  Sex: Male

DRUGS (2)
  1. GLEEVEC [Suspect]
     Indication: CHRONIC MYELOID LEUKAEMIA
     Dosage: 600 MG, UNK
     Dates: start: 20080101
  2. GLEEVEC [Suspect]
     Dosage: 800 MG, DAILY
     Route: 048
     Dates: start: 20080304

REACTIONS (3)
  - ALOPECIA [None]
  - POST PROCEDURAL HAEMORRHAGE [None]
  - TRANSURETHRAL PROSTATECTOMY [None]
